FAERS Safety Report 5168169-1 (Version None)
Quarter: 2006Q4

REPORT INFORMATION
  Report Type: 
  Country: None (occurrence: None)
  Receive Date: 20061208
  Receipt Date: 20061128
  Transmission Date: 20070319
  Serious: Yes (Other)
  Sender: FDA-Public Use
  Company Number: 2006GB02182

PATIENT
  Sex: Male

DRUGS (2)
  1. QUETIAPINE FUMARATE [Suspect]
     Route: 048
  2. QUETIAPINE FUMARATE [Suspect]
     Dosage: INCREASED DOSE
     Route: 048

REACTIONS (1)
  - LYMPHOPENIA [None]
